FAERS Safety Report 14728527 (Version 1)
Quarter: 2018Q2

REPORT INFORMATION
  Report Type: Spontaneous
  Country: US (occurrence: US)
  Receive Date: 20180402
  Receipt Date: 20180402
  Transmission Date: 20180711
  Serious: Yes (Disabling)
  Sender: FDA-Public Use
  Company Number: None

PATIENT
  Age: 51 Year
  Sex: Female
  Weight: 67.05 kg

DRUGS (4)
  1. OSELTAMIVIR PHOSPHATE CAPSULES USP [Suspect]
     Active Substance: OSELTAMIVIR PHOSPHATE
     Indication: INFLUENZA
     Dosage: ?          QUANTITY:1 CAPSULE(S);?
     Route: 048
     Dates: start: 20180109, end: 20180110
  2. BENZONATATE. [Suspect]
     Active Substance: BENZONATATE
  3. CLARITIN [Concomitant]
     Active Substance: LORATADINE
  4. SYNTHROID [Concomitant]
     Active Substance: LEVOTHYROXINE SODIUM

REACTIONS (1)
  - Insomnia [None]

NARRATIVE: CASE EVENT DATE: 20180109
